FAERS Safety Report 20111680 (Version 1)
Quarter: 2021Q4

REPORT INFORMATION
  Report Type: Spontaneous
  Country: CA (occurrence: CA)
  Receive Date: 20211125
  Receipt Date: 20211125
  Transmission Date: 20220303
  Serious: Yes (Death, Other)
  Sender: FDA-Public Use
  Company Number: CA-BRISTOL-MYERS SQUIBB COMPANY-BMS-2021-126320

PATIENT
  Age: 67 Year
  Sex: Female
  Weight: 81 kg

DRUGS (9)
  1. ELIQUIS [Suspect]
     Active Substance: APIXABAN
     Indication: Pulmonary embolism
     Dosage: 5 MILLIGRAM, BID
     Route: 048
  2. NAPROXEN [Concomitant]
     Active Substance: NAPROXEN
     Indication: Product used for unknown indication
     Dosage: UNK
     Route: 065
  3. VITAMINS [Concomitant]
     Active Substance: VITAMINS
     Indication: Product used for unknown indication
     Dosage: UNK
     Route: 065
  4. JAMP ALLOPURINOL [Concomitant]
     Indication: Product used for unknown indication
     Dosage: UNK
     Route: 065
  5. JAMP EZETIMIBE [Concomitant]
     Indication: Product used for unknown indication
     Dosage: UNK
     Route: 065
  6. CHOLECALCIFEROL [Concomitant]
     Active Substance: CHOLECALCIFEROL
     Indication: Product used for unknown indication
     Dosage: UNK
     Route: 065
  7. M PANTOPRAZOLE [Concomitant]
     Indication: Product used for unknown indication
     Dosage: UNK
     Route: 065
  8. SANDOZ TOLTERODINE LA [Concomitant]
     Indication: Product used for unknown indication
     Dosage: UNK
     Route: 065
  9. TEVA MOMETASONE [Concomitant]
     Indication: Product used for unknown indication
     Dosage: UNK
     Route: 065

REACTIONS (1)
  - Cerebral haemorrhage [Fatal]
